FAERS Safety Report 8506910-8 (Version None)
Quarter: 2012Q3

REPORT INFORMATION
  Report Type: 
  Country: None (occurrence: None)
  Receive Date: 20120712
  Receipt Date: 20120703
  Transmission Date: 20120928
  Serious: No
  Sender: FDA-Public Use
  Company Number: US-PFIZER INC-2012161416

PATIENT
  Sex: Female

DRUGS (1)
  1. NORGESTREL AND ETHINYL ESTRADIOL [Suspect]
     Indication: CONTRACEPTION
     Dosage: NORGESTREL 0.3MG / ETHINYL ESTRADIOL 0.03MG, UNK

REACTIONS (3)
  - ABDOMINAL PAIN [None]
  - DYSFUNCTIONAL UTERINE BLEEDING [None]
  - PRODUCT QUALITY ISSUE [None]
